FAERS Safety Report 21185012 (Version 3)
Quarter: 2022Q3

REPORT INFORMATION
  Report Type: Spontaneous
  Country: US (occurrence: US)
  Receive Date: 20220808
  Receipt Date: 20220904
  Transmission Date: 20221027
  Serious: No
  Sender: FDA-Public Use
  Company Number: US-JNJFOC-20220757111

PATIENT
  Age: 38 Year
  Sex: Male
  Weight: 86.260 kg

DRUGS (2)
  1. STELARA [Suspect]
     Active Substance: USTEKINUMAB
     Indication: Psoriatic arthropathy
     Route: 058
     Dates: start: 202112
  2. STELARA [Suspect]
     Active Substance: USTEKINUMAB
     Indication: Psoriasis

REACTIONS (3)
  - Product dose omission issue [Unknown]
  - Product packaging issue [Unknown]
  - Product storage error [Unknown]

NARRATIVE: CASE EVENT DATE: 20220722
